FAERS Safety Report 8030380-X (Version None)
Quarter: 2012Q1

REPORT INFORMATION
  Report Type: 
  Country: None (occurrence: None)
  Receive Date: 20120109
  Receipt Date: 20120109
  Transmission Date: 20120608
  Serious: Yes (Life-Threatening, Hospitalization)
  Sender: FDA-Public Use
  Company Number: None

PATIENT
  Age: 73 Year
  Sex: Male
  Weight: 102.51 kg

DRUGS (14)
  1. BICALUTAMIDE [Concomitant]
     Route: 048
  2. MIDAZOLAM [Concomitant]
     Route: 042
  3. CLONIDINE [Concomitant]
     Route: 048
  4. LOSARTAN POTASSIUM [Concomitant]
     Route: 048
  5. NISOLDIPINE [Concomitant]
     Route: 048
  6. FENTANYL [Concomitant]
     Route: 042
  7. SPIRONOLACTONE [Concomitant]
     Route: 048
  8. SIMVASTATIN [Concomitant]
     Route: 048
  9. ZOLPIDEM [Concomitant]
     Route: 048
  10. ACETAMINOPHEN [Concomitant]
     Route: 048
  11. ADVAIR DISKUS 250/50 [Concomitant]
     Route: 048
  12. OXYBUTYNIN [Concomitant]
     Route: 048
  13. ALBUTEROL [Concomitant]
     Route: 048
  14. VISIPAQUE [Suspect]
     Indication: ANEURYSM REPAIR
     Dosage: 100 ML
     Route: 040
     Dates: start: 20110920, end: 20110920

REACTIONS (2)
  - ANAPHYLACTIC REACTION [None]
  - UNRESPONSIVE TO STIMULI [None]
